FAERS Safety Report 10782401 (Version 2)
Quarter: 2016Q3

REPORT INFORMATION
  Report Type: Spontaneous
  Country: US (occurrence: US)
  Receive Date: 20150210
  Receipt Date: 20160804
  Transmission Date: 20161109
  Serious: Yes (Other)
  Sender: FDA-Public Use
  Company Number: US-BAYER-2015-016878

PATIENT
  Sex: Female
  Weight: 72.11 kg

DRUGS (7)
  1. CIPROFLOXACIN. [Suspect]
     Active Substance: CIPROFLOXACIN
     Dosage: UNK
     Dates: start: 20050930
  2. PREDNISONE. [Concomitant]
     Active Substance: PREDNISONE
     Indication: NASAL CONGESTION
  3. PREDNISONE. [Concomitant]
     Active Substance: PREDNISONE
     Indication: VASCULITIS
     Dosage: UNK
     Dates: start: 201302
  4. CIPROFLOXACIN. [Suspect]
     Active Substance: CIPROFLOXACIN
     Dosage: UNK
     Dates: start: 20120709
  5. AVELOX [Suspect]
     Active Substance: MOXIFLOXACIN HYDROCHLORIDE
     Indication: OROPHARYNGEAL PAIN
  6. AVELOX [Suspect]
     Active Substance: MOXIFLOXACIN HYDROCHLORIDE
     Indication: RESPIRATORY TRACT CONGESTION
     Dosage: UNK
     Dates: start: 20130115
  7. LISINOPRIL. [Concomitant]
     Active Substance: LISINOPRIL
     Indication: VASCULITIS
     Dosage: UNK
     Dates: start: 201302

REACTIONS (11)
  - Asthenia [None]
  - Emotional distress [None]
  - Arthralgia [None]
  - Neuropathy peripheral [None]
  - Injury [None]
  - Myalgia [None]
  - Myositis [None]
  - Anxiety [None]
  - Fear [None]
  - Pain [None]
  - Anhedonia [None]
